FAERS Safety Report 8943178 (Version 1)
Quarter: 2012Q4

REPORT INFORMATION
  Report Type: 
  Country: GB (occurrence: GB)
  Receive Date: 20121204
  Receipt Date: 20121204
  Transmission Date: 20130627
  Serious: Yes (Hospitalization)
  Sender: FDA-Public Use
  Company Number: GB-BAYER-2012-125960

PATIENT
  Age: 54 Year

DRUGS (13)
  1. CIPROFLOXACIN [Suspect]
     Dosage: UNK
     Route: 048
     Dates: start: 20121027, end: 20121028
  2. LEVETIRACETAM [Suspect]
     Indication: EPILEPSY
     Dosage: 1 g, BID
     Route: 048
  3. NITROFURANTOIN [Suspect]
     Dosage: 100 mg, QID
     Route: 048
     Dates: start: 20121028, end: 20121029
  4. TRIMETHOPRIM [Suspect]
     Dosage: 200 mg, BID
     Route: 048
     Dates: start: 20121029, end: 20121030
  5. CHLORPHENIRAMINE [Concomitant]
     Dosage: 4 mg,TID, PRN
     Route: 048
     Dates: start: 20121029
  6. COLESTYRAMINE [Concomitant]
     Dosage: 4 g, QD
     Dates: start: 20121031
  7. CYCLIZINE [Concomitant]
     Dosage: 50 mg, TID
     Dates: start: 20121028, end: 20121030
  8. DOMPERIDONE [Concomitant]
     Dosage: 20 mg, TID
     Route: 048
     Dates: start: 20121030
  9. LOPERAMIDE [Concomitant]
     Dosage: UNK
     Route: 048
     Dates: start: 20121027, end: 20121027
  10. METOCLOPRAMIDE [Concomitant]
     Dosage: 10 mg, UNK
     Dates: start: 20121030, end: 20121030
  11. OMEPRAZOLE [Concomitant]
     Dosage: 40 mg, QD
     Route: 042
     Dates: start: 20121030
  12. PARACETAMOL [Concomitant]
     Dosage: 1 g, PRN
     Route: 048
     Dates: start: 20121029
  13. TOPIRAMATE [Concomitant]
     Indication: EPILEPSY
     Dosage: 50 mg, BID
     Route: 048

REACTIONS (6)
  - Drug reaction with eosinophilia and systemic symptoms [Unknown]
  - Eosinophilia [Unknown]
  - Inflammatory marker increased [Unknown]
  - Rash pustular [Unknown]
  - White blood cell count increased [Unknown]
  - Rash generalised [Recovering/Resolving]
